FAERS Safety Report 5628202-7 (Version None)
Quarter: 2008Q1

REPORT INFORMATION
  Report Type: 
  Country: None (occurrence: None)
  Receive Date: 20080215
  Receipt Date: 20080202
  Transmission Date: 20080703
  Serious: Yes (Other)
  Sender: FDA-Public Use
  Company Number: FR-GILEAD-2007-0014677

PATIENT
  Sex: Female
  Weight: 72 kg

DRUGS (5)
  1. TRUVADA [Suspect]
     Indication: HIV INFECTION
     Route: 048
     Dates: start: 20070511
  2. NORVIR 100 [Concomitant]
     Indication: HIV INFECTION
     Route: 048
     Dates: start: 20050415
  3. TMC 114 [Concomitant]
     Indication: HIV INFECTION
     Route: 048
     Dates: start: 20050415, end: 20070913
  4. TMC 114 [Concomitant]
     Route: 048
     Dates: start: 20070914
  5. VALACYCLOVIR [Concomitant]
     Indication: HERPES VIRUS INFECTION
     Route: 048
     Dates: start: 20030101

REACTIONS (2)
  - ABORTION SPONTANEOUS [None]
  - PREGNANCY [None]
